FAERS Safety Report 7864539-9 (Version None)
Quarter: 2011Q4

REPORT INFORMATION
  Report Type: 
  Country: None (occurrence: None)
  Receive Date: 20111028
  Receipt Date: 20111025
  Transmission Date: 20120403
  Serious: No
  Sender: FDA-Public Use
  Company Number: US-PFIZER INC-2011260050

PATIENT
  Sex: Female
  Weight: 51.7 kg

DRUGS (3)
  1. MULTI-VITAMINS [Concomitant]
     Dosage: UNK, 1X/DAY
  2. PREMARIN [Suspect]
     Indication: URETHRAL PROLAPSE
  3. PREMARIN [Suspect]
     Indication: OFF LABEL USE
     Dosage: UNK
     Route: 067
     Dates: start: 20110501, end: 20110501

REACTIONS (1)
  - MUSCLE SPASMS [None]
